FAERS Safety Report 8835682 (Version 1)
Quarter: 2012Q4

REPORT INFORMATION
  Report Type: Report from Study
  Country: US (occurrence: US)
  Receive Date: 20121011
  Receipt Date: 20121011
  Transmission Date: 20130627
  Serious: Yes (Hospitalization)
  Sender: FDA-Public Use
  Company Number: US-JNJFOC-20121005948

PATIENT
  Age: 20 Year
  Sex: Male
  Weight: 83.7 kg

DRUGS (6)
  1. REMICADE [Suspect]
     Indication: CROHN^S DISEASE
     Route: 042
     Dates: start: 20120501
  2. PROBIOTICS [Concomitant]
  3. MULTIVITAMINS [Concomitant]
  4. URSODIOL [Concomitant]
  5. VITAMIN D [Concomitant]
  6. E VITAMIN [Concomitant]

REACTIONS (1)
  - Crohn^s disease [Recovered/Resolved]
